FAERS Safety Report 19345061 (Version 1)
Quarter: 2021Q2

REPORT INFORMATION
  Report Type: Spontaneous
  Country: US (occurrence: US)
  Receive Date: 20210531
  Receipt Date: 20210531
  Transmission Date: 20210717
  Serious: Yes (Other)
  Sender: FDA-Public Use
  Company Number: US-PURDUE-USA-2020-0192777

PATIENT
  Age: 46 Year
  Sex: Male
  Weight: 79.37 kg

DRUGS (3)
  1. OXYCONTIN [Suspect]
     Active Substance: OXYCODONE HYDROCHLORIDE
     Indication: NECK PAIN
     Dosage: UNK
     Route: 048
     Dates: start: 20080101, end: 20190101
  2. SOMA [Suspect]
     Active Substance: CARISOPRODOL
     Indication: PRODUCT USED FOR UNKNOWN INDICATION
     Route: 065
  3. MORPHINE SULFATE (SIMILAR TO NDA 19?516) [Suspect]
     Active Substance: MORPHINE SULFATE
     Indication: PRODUCT USED FOR UNKNOWN INDICATION
     Route: 065

REACTIONS (6)
  - Memory impairment [Unknown]
  - Depression [Unknown]
  - Pain [Unknown]
  - Withdrawal syndrome [Unknown]
  - Dizziness [Unknown]
  - Drug dependence [Unknown]

NARRATIVE: CASE EVENT DATE: 20080101
